FAERS Safety Report 17912195 (Version 1)
Quarter: 2020Q2

REPORT INFORMATION
  Report Type: Spontaneous
  Country: RO (occurrence: RO)
  Receive Date: 20200618
  Receipt Date: 20200618
  Transmission Date: 20200714
  Serious: Yes (Life-Threatening, Hospitalization, Other)
  Sender: FDA-Public Use
  Company Number: RO-STRIDES ARCOLAB LIMITED-2020SP007088

PATIENT
  Age: 36 Year
  Sex: Male

DRUGS (1)
  1. HYDROCORTISONE. [Suspect]
     Active Substance: HYDROCORTISONE
     Indication: RASH
     Dosage: 100 MILLIGRAM
     Route: 065

REACTIONS (10)
  - Atrioventricular block complete [Recovered/Resolved]
  - Muscular weakness [Recovered/Resolved]
  - Thyrotoxic periodic paralysis [Recovered/Resolved]
  - Paralysis [Recovered/Resolved]
  - Syncope [Recovered/Resolved]
  - Ventricular fibrillation [Recovered/Resolved]
  - Ventricular tachycardia [Recovered/Resolved]
  - Hypokalaemia [Recovered/Resolved]
  - Ventricular arrhythmia [Recovered/Resolved]
  - Heart rate decreased [Recovered/Resolved]
